FAERS Safety Report 17344783 (Version 1)
Quarter: 2020Q1

REPORT INFORMATION
  Report Type: Spontaneous
  Country: US (occurrence: US)
  Receive Date: 20200129
  Receipt Date: 20200129
  Transmission Date: 20200409
  Serious: No
  Sender: FDA-Public Use
  Company Number: US-ALLERGAN-1944360US

PATIENT
  Age: 35 Year
  Sex: Female

DRUGS (2)
  1. BOTOX COSMETIC [Suspect]
     Active Substance: ONABOTULINUMTOXINA
     Indication: SKIN WRINKLING
     Dosage: 10 UNITS, SINGLE
     Dates: start: 20191018, end: 20191018
  2. BOTOX COSMETIC [Suspect]
     Active Substance: ONABOTULINUMTOXINA
     Indication: SKIN WRINKLING
     Dosage: 10 UNITS, SINGLE
     Dates: start: 20191018, end: 20191018

REACTIONS (6)
  - Fatigue [Not Recovered/Not Resolved]
  - Visual impairment [Recovering/Resolving]
  - Pruritus [Unknown]
  - Hypokalaemia [Unknown]
  - Malaise [Not Recovered/Not Resolved]
  - Sensory loss [Recovering/Resolving]

NARRATIVE: CASE EVENT DATE: 20191020
